FAERS Safety Report 9736668 (Version 3)
Quarter: 2015Q3

REPORT INFORMATION
  Report Type: Spontaneous
  Country: US (occurrence: US)
  Receive Date: 20131206
  Receipt Date: 20150804
  Transmission Date: 20151125
  Serious: Yes (Hospitalization)
  Sender: FDA-Public Use
  Company Number: US-GILEAD-2009-0022790

PATIENT
  Age: 76 Year
  Sex: Male
  Weight: 86.18 kg

DRUGS (15)
  1. LETAIRIS [Suspect]
     Active Substance: AMBRISENTAN
     Indication: PULMONARY ARTERIAL HYPERTENSION
     Route: 048
     Dates: start: 20090511, end: 20090621
  2. ALLOPURINOL. [Concomitant]
     Active Substance: ALLOPURINOL
  3. LIPITOR [Concomitant]
     Active Substance: ATORVASTATIN CALCIUM
  4. EPLERENONE. [Concomitant]
     Active Substance: EPLERENONE
  5. CARVEDILOL. [Concomitant]
     Active Substance: CARVEDILOL
  6. LAMISIL [Concomitant]
     Active Substance: TERBINAFINE HYDROCHLORIDE
  7. NEXIUM [Concomitant]
     Active Substance: ESOMEPRAZOLE MAGNESIUM
  8. COUMADIN [Concomitant]
     Active Substance: WARFARIN SODIUM
  9. BUMEX [Concomitant]
     Active Substance: BUMETANIDE
  10. HUMALOG [Concomitant]
     Active Substance: INSULIN LISPRO
  11. TRAVATAN [Concomitant]
     Active Substance: TRAVOPROST
  12. MILRINONE LACTATE. [Concomitant]
     Active Substance: MILRINONE LACTATE
  13. COLCHICINE. [Concomitant]
     Active Substance: COLCHICINE
  14. NEURONTIN [Concomitant]
     Active Substance: GABAPENTIN
  15. AMBIEN [Concomitant]
     Active Substance: ZOLPIDEM TARTRATE

REACTIONS (3)
  - Fluid overload [Recovering/Resolving]
  - Gait disturbance [Unknown]
  - Oedema [Unknown]

NARRATIVE: CASE EVENT DATE: 20090621
